FAERS Safety Report 24546803 (Version 1)
Quarter: 2024Q4

REPORT INFORMATION
  Report Type: Spontaneous
  Country: CN (occurrence: CN)
  Receive Date: 20241024
  Receipt Date: 20241024
  Transmission Date: 20250115
  Serious: Yes (Life-Threatening)
  Sender: ABBVIE
  Company Number: CN-ABBVIE-5975596

PATIENT
  Age: 70 Year
  Sex: Male
  Weight: 70 kg

DRUGS (3)
  1. VENETOCLAX [Suspect]
     Active Substance: VENETOCLAX
     Indication: Leukaemia
     Dosage: 200 MILLIGRAM D2
     Route: 048
     Dates: start: 20240920, end: 20240920
  2. VENETOCLAX [Suspect]
     Active Substance: VENETOCLAX
     Indication: Leukaemia
     Dosage: 400 MILLIGRAM QD
     Route: 048
     Dates: start: 20240921, end: 20241014
  3. VENETOCLAX [Suspect]
     Active Substance: VENETOCLAX
     Indication: Leukaemia
     Dosage: 100 MILLIGRAM D1
     Route: 048
     Dates: start: 20240919, end: 20240919

REACTIONS (2)
  - Myelosuppression [Not Recovered/Not Resolved]
  - Granulocyte percentage decreased [Not Recovered/Not Resolved]

NARRATIVE: CASE EVENT DATE: 20241014
